FAERS Safety Report 9051126 (Version 1)
Quarter: 2013Q1

REPORT INFORMATION
  Report Type: Spontaneous
  Country: US (occurrence: US)
  Receive Date: 20130206
  Receipt Date: 20130206
  Transmission Date: 20140127
  Serious: Yes (Other)
  Sender: FDA-Public Use
  Company Number: US-PFIZER INC-2013045411

PATIENT
  Age: 79 Year
  Sex: Male

DRUGS (12)
  1. TIKOSYN [Suspect]
     Indication: ATRIAL FIBRILLATION
     Dosage: 250 UG, EVERY 12 HOURS
     Dates: start: 201208
  2. TIKOSYN [Suspect]
     Indication: ATRIAL FLUTTER
  3. COUMADIN [Concomitant]
     Dosage: UNK
  4. COD-LIVER OIL [Concomitant]
     Dosage: UNK
  5. OMEGA 3 [Concomitant]
     Dosage: UNK
  6. GLUCOSAMINE [Concomitant]
     Dosage: UNK
  7. ASA [Concomitant]
     Dosage: UNK
  8. ADVAIR [Concomitant]
     Dosage: UNK
  9. AMBIEN [Concomitant]
     Dosage: UNK
  10. PRINIVIL [Concomitant]
     Dosage: UNK
  11. DIGOXIN [Concomitant]
     Indication: ATRIAL FIBRILLATION
     Dosage: 0.25 MG, DAILY
  12. CARDIZEM [Concomitant]
     Indication: ATRIAL FIBRILLATION
     Route: 041

REACTIONS (4)
  - Ventricular tachycardia [Unknown]
  - Hypotension [Unknown]
  - Ventricular extrasystoles [Unknown]
  - Tachyarrhythmia [Unknown]
